FAERS Safety Report 22760076 (Version 2)
Quarter: 2024Q2

REPORT INFORMATION
  Report Type: Spontaneous
  Country: ES (occurrence: ES)
  Receive Date: 20230728
  Receipt Date: 20240521
  Transmission Date: 20240715
  Serious: Yes (Other)
  Sender: FDA-Public Use
  Company Number: ES-Accord-269103

PATIENT
  Age: 4 Decade
  Sex: Female

DRUGS (2)
  1. TERIFLUNOMIDE [Suspect]
     Active Substance: TERIFLUNOMIDE
     Indication: Relapsing-remitting multiple sclerosis
     Dosage: TREATMENT WITH TERIFLUNOMIDE WAS RESTARTED 14 MILLIGRAM, QD
  2. METHYLPREDNISOLONE [Concomitant]
     Active Substance: METHYLPREDNISOLONE
     Indication: Relapsing-remitting multiple sclerosis
     Dosage: 1000 MILLIGRAM, QD
     Route: 042

REACTIONS (1)
  - Raynaud^s phenomenon [Recovered/Resolved]
